FAERS Safety Report 7341763-5 (Version None)
Quarter: 2011Q1

REPORT INFORMATION
  Report Type: 
  Country: None (occurrence: None)
  Receive Date: 20110309
  Receipt Date: 20110301
  Transmission Date: 20110831
  Serious: Yes (Hospitalization)
  Sender: FDA-Public Use
  Company Number: MY-JNJFOC-20110301172

PATIENT
  Sex: Male
  Weight: 64 kg

DRUGS (3)
  1. PALIPERIDONE PALMITATE [Suspect]
     Indication: SCHIZOPHRENIA
     Route: 030
  2. OLANZAPINE [Concomitant]
     Indication: SCHIZOPHRENIA
  3. LORAZEPAM [Concomitant]
     Indication: POOR QUALITY SLEEP

REACTIONS (1)
  - INTENTIONAL SELF-INJURY [None]
